FAERS Safety Report 19685122 (Version 1)
Quarter: 2021Q3

REPORT INFORMATION
  Report Type: Spontaneous
  Country: DE (occurrence: DE)
  Receive Date: 20210811
  Receipt Date: 20210811
  Transmission Date: 20211014
  Serious: Yes (Other)
  Sender: FDA-Public Use
  Company Number: NVSC2021DE176325

PATIENT
  Age: 76 Year
  Sex: Male

DRUGS (9)
  1. TORASEMID?1A PHARMA [Concomitant]
     Active Substance: TORSEMIDE
     Indication: PRODUCT USED FOR UNKNOWN INDICATION
     Dosage: 5 MG, QD (0?0.5?0?0)
     Route: 065
  2. CETIRIZIN 1A PHARMA [Concomitant]
     Active Substance: CETIRIZINE HYDROCHLORIDE
     Indication: PRODUCT USED FOR UNKNOWN INDICATION
     Dosage: UNK PRN (AS REQUIRED)
     Route: 065
  3. ASS RATIOPHARM [Suspect]
     Active Substance: ASPIRIN
     Indication: CARDIAC OPERATION
     Dosage: UNK
     Route: 048
     Dates: start: 201809, end: 20210615
  4. CANDESARTAN. [Concomitant]
     Active Substance: CANDESARTAN
     Indication: PRODUCT USED FOR UNKNOWN INDICATION
     Dosage: UNK (AT BLOOD PRESSURE OVER 140)
     Route: 065
  5. ASS 100 ? 1 A PHARMA TAH [Suspect]
     Active Substance: ASPIRIN
     Indication: PRODUCT USED FOR UNKNOWN INDICATION
     Dosage: UNK
     Route: 048
     Dates: end: 20210616
  6. ALLOPURINOL 1 A PHARMA [Concomitant]
     Indication: PRODUCT USED FOR UNKNOWN INDICATION
     Dosage: UNK (0?0?0.5?0, BREAK)
     Route: 065
  7. MOMETASONE [Concomitant]
     Active Substance: MOMETASONE
     Indication: PRODUCT USED FOR UNKNOWN INDICATION
     Dosage: UNK
     Route: 065
  8. OMEPRAZOL 1A PHARMA [Concomitant]
     Active Substance: OMEPRAZOLE
     Indication: PRODUCT USED FOR UNKNOWN INDICATION
     Dosage: 20 MG,QD ( 0?1?0?0)
     Route: 065
  9. DEXAMETHASONE. [Concomitant]
     Active Substance: DEXAMETHASONE
     Indication: PRODUCT USED FOR UNKNOWN INDICATION
     Dosage: 1 TABLET AS REQUIRED
     Route: 065

REACTIONS (7)
  - Renal impairment [Unknown]
  - Dyspnoea [Unknown]
  - Nasal congestion [Unknown]
  - Nasal inflammation [Unknown]
  - Acute kidney injury [Unknown]
  - Blood pressure decreased [Unknown]
  - Rash [Unknown]

NARRATIVE: CASE EVENT DATE: 201809
